FAERS Safety Report 6402904-7 (Version None)
Quarter: 2009Q4

REPORT INFORMATION
  Report Type: 
  Country: None (occurrence: None)
  Receive Date: 20091014
  Receipt Date: 20091014
  Transmission Date: 20100525
  Serious: Yes (Death, Life-Threatening, Hospitalization)
  Sender: FDA-Public Use
  Company Number: None

PATIENT
  Sex: Male

DRUGS (7)
  1. BEVACIZUMAB GENENTECH [Suspect]
     Indication: OESOPHAGEAL ADENOCARCINOMA
     Dosage: 413 MG EVERY 21 DAYS INTRAVENOUS
     Route: 042
     Dates: start: 20090305, end: 20090925
  2. MS CONTIN [Concomitant]
  3. IBUPROFEN [Concomitant]
  4. COLACE [Concomitant]
  5. MEGACE [Concomitant]
  6. SENNA [Concomitant]
  7. ZOLOFT [Concomitant]

REACTIONS (6)
  - GENERAL PHYSICAL HEALTH DETERIORATION [None]
  - MENTAL STATUS CHANGES [None]
  - PLEURAL EFFUSION [None]
  - PNEUMONIA [None]
  - RESPIRATORY FAILURE [None]
  - SHOCK [None]
